FAERS Safety Report 24882653 (Version 2)
Quarter: 2025Q1

REPORT INFORMATION
  Report Type: Report from Study
  Country: CH (occurrence: CH)
  Receive Date: 20250124
  Receipt Date: 20250131
  Transmission Date: 20250409
  Serious: Yes (Hospitalization)
  Sender: JOHNSON AND JOHNSON
  Company Number: CH-JNJFOC-20250151679

PATIENT
  Age: 65 Year
  Sex: Female
  Weight: 40 kg

DRUGS (5)
  1. ERDAFITINIB [Suspect]
     Active Substance: ERDAFITINIB
     Indication: Transitional cell carcinoma metastatic
     Route: 048
     Dates: start: 20250103
  2. ASPIRIN [Concomitant]
     Active Substance: ASPIRIN
     Route: 048
  3. EZETIMIB ROSUVASTATIN AXAPHARM [Concomitant]
     Dosage: 10/20 MG
     Route: 048
  4. MORPHINE [Concomitant]
     Active Substance: MORPHINE
     Route: 048
  5. METAMIZOLE [Concomitant]
     Active Substance: METAMIZOLE
     Route: 048

REACTIONS (2)
  - Diarrhoea [Recovered/Resolved]
  - Interstitial lung disease [Unknown]

NARRATIVE: CASE EVENT DATE: 20250104
